FAERS Safety Report 7305105-3 (Version None)
Quarter: 2011Q1

REPORT INFORMATION
  Report Type: 
  Country: None (occurrence: None)
  Receive Date: 20110222
  Receipt Date: 20110217
  Transmission Date: 20110831
  Serious: Yes (Other)
  Sender: FDA-Public Use
  Company Number: US-AMGEN-QUU405675

PATIENT
  Age: 34 Year
  Sex: Female
  Weight: 90 kg

DRUGS (12)
  1. NPLATE [Suspect]
     Indication: IDIOPATHIC THROMBOCYTOPENIC PURPURA
     Dosage: 6 A?G/KG, UNK
     Dates: start: 20090123, end: 20100302
  2. TRAMADOL HYDROCHLORIDE [Concomitant]
     Dosage: 300 MG, QD
     Route: 048
  3. PREGABALIN [Concomitant]
     Dosage: 150 MG, BID
     Route: 048
  4. OMEPRAZOLE [Concomitant]
     Dosage: 40 MG, QD
     Route: 048
  5. HYDROXYCHLOROQUINE SULFATE [Concomitant]
     Dosage: 200 MG, BID
     Route: 048
  6. IBUPROFEN [Concomitant]
     Dosage: 200 MG, PRN
     Route: 048
  7. CORTICOSTEROID NOS [Concomitant]
     Dosage: UNK UNK, UNK
     Dates: start: 20081118
  8. NPLATE [Suspect]
     Dates: end: 20100302
  9. RITUXIMAB [Concomitant]
     Dosage: 375 MG/M2, UNK
     Dates: start: 20090102, end: 20090109
  10. DEXAMETHASONE [Concomitant]
     Dosage: 40 MG, UNK
     Route: 042
     Dates: start: 20100302, end: 20100310
  11. DIPHENHYDRAMINE [Concomitant]
     Dosage: 25 MG, PRN
     Route: 048
  12. LOTREL [Concomitant]
     Dosage: UNK UNK, QD
     Route: 048

REACTIONS (10)
  - CONTUSION [None]
  - HERPES ZOSTER [None]
  - PAIN [None]
  - THERAPEUTIC RESPONSE DECREASED [None]
  - SINUS CONGESTION [None]
  - THROMBOCYTOPENIA [None]
  - RASH [None]
  - BONE PAIN [None]
  - PARAESTHESIA [None]
  - FATIGUE [None]
